FAERS Safety Report 4787964-1 (Version None)
Quarter: 2005Q3

REPORT INFORMATION
  Report Type: 
  Country: None (occurrence: None)
  Receive Date: 20050926
  Receipt Date: 20050324
  Transmission Date: 20060218
  Serious: Yes (Other)
  Sender: FDA-Public Use
  Company Number: US-JNJFOC-20050306838

PATIENT
  Age: 37 Year
  Sex: Female

DRUGS (5)
  1. ORTHO-NOVUM 7/7/7-28 [Suspect]
     Indication: CONTRACEPTION
     Dosage: 1 DOSE(S), 1 IN 1 DAY; ORAL
     Route: 048
  2. TOPAMAX [Concomitant]
  3. ZANAFLEX [Concomitant]
  4. VALTREX [Concomitant]
  5. MAXALT [Concomitant]

REACTIONS (3)
  - DRUG EXPOSURE DURING PREGNANCY [None]
  - NASAL CONGESTION [None]
  - PREGNANCY ON ORAL CONTRACEPTIVE [None]
